FAERS Safety Report 24449824 (Version 2)
Quarter: 2024Q4

REPORT INFORMATION
  Report Type: Spontaneous
  Country: IN (occurrence: IN)
  Receive Date: 20241017
  Receipt Date: 20241024
  Transmission Date: 20250115
  Serious: Yes (Other)
  Sender: PFIZER
  Company Number: IN-PFIZER INC-PV202400133014

PATIENT
  Age: 67 Year
  Sex: Female
  Weight: 75.8 kg

DRUGS (2)
  1. LORLATINIB [Suspect]
     Active Substance: LORLATINIB
     Indication: Lung neoplasm malignant
     Dosage: 100 MG, 1X/DAY
     Route: 048
     Dates: start: 20240629
  2. LORLATINIB [Suspect]
     Active Substance: LORLATINIB
     Dosage: 100 MG, ALTERNATE DAY
     Route: 048

REACTIONS (5)
  - Second primary malignancy [Unknown]
  - Ovarian cancer [Unknown]
  - Blood pressure systolic increased [Unknown]
  - Body mass index increased [Unknown]
  - Off label use [Unknown]

NARRATIVE: CASE EVENT DATE: 20240906
